FAERS Safety Report 26088273 (Version 1)
Quarter: 2025Q4

REPORT INFORMATION
  Report Type: Report from Study
  Country: US (occurrence: US)
  Receive Date: 20251125
  Receipt Date: 20251125
  Transmission Date: 20260118
  Serious: Yes (Other)
  Sender: ALEXION PHARMACEUTICALS
  Company Number: US-ASTRAZENECA-202511NAM019950US

PATIENT
  Age: 56 Year
  Sex: Female

DRUGS (1)
  1. STRENSIQ [Suspect]
     Active Substance: ASFOTASE ALFA
     Indication: Phosphorus metabolism disorder
     Dosage: 80 MILLIGRAM, 6 TIMES PER WEEK
     Route: 065

REACTIONS (6)
  - Malignant melanoma [Unknown]
  - Cataract [Unknown]
  - Urinary tract infection [Unknown]
  - Weight decreased [Unknown]
  - Pain in extremity [Unknown]
  - Bursitis [Unknown]
